FAERS Safety Report 7754371-9 (Version None)
Quarter: 2011Q3

REPORT INFORMATION
  Report Type: 
  Country: None (occurrence: None)
  Receive Date: 20110915
  Receipt Date: 20110905
  Transmission Date: 20111222
  Serious: Yes (Hospitalization)
  Sender: FDA-Public Use
  Company Number: JP-BRISTOL-MYERS SQUIBB COMPANY-16058810

PATIENT
  Age: 79 Year
  Sex: Male

DRUGS (4)
  1. METFORMIN HCL [Suspect]
     Indication: DIABETES MELLITUS
     Route: 048
     Dates: start: 19940101
  2. GLYBURIDE [Suspect]
     Indication: DIABETES MELLITUS
     Route: 048
     Dates: start: 19940101
  3. VOGLIBOSE [Suspect]
     Indication: DIABETES MELLITUS
     Route: 048
     Dates: start: 19940101
  4. SITAGLIPTIN PHOSPHATE [Suspect]
     Indication: DIABETES MELLITUS
     Route: 048
     Dates: start: 20100101

REACTIONS (1)
  - HYPOGLYCAEMIC COMA [None]
